FAERS Safety Report 7624428-1 (Version None)
Quarter: 2011Q3

REPORT INFORMATION
  Report Type: 
  Country: None (occurrence: None)
  Receive Date: 20110720
  Receipt Date: 20110708
  Transmission Date: 20111222
  Serious: Yes (Death)
  Sender: FDA-Public Use
  Company Number: US-GENZYME-CLOF-1001567

PATIENT
  Sex: Male
  Weight: 69 kg

DRUGS (16)
  1. BACTRIM DS [Concomitant]
     Indication: PRODUCT USED FOR UNKNOWN INDICATION
     Dosage: 800-160 MG, TID
     Route: 048
     Dates: start: 20110406, end: 20110412
  2. NEXIUM [Concomitant]
     Indication: PRODUCT USED FOR UNKNOWN INDICATION
     Dosage: UNK
     Route: 065
     Dates: start: 20110401
  3. VERSED [Concomitant]
     Indication: PRODUCT USED FOR UNKNOWN INDICATION
     Dosage: 1 MG, ONCE
     Route: 040
     Dates: start: 20110405, end: 20110405
  4. SOLU-MEDROL [Concomitant]
     Indication: PRODUCT USED FOR UNKNOWN INDICATION
     Dosage: 200 MG, ONCE
     Route: 040
     Dates: start: 20110406, end: 20110406
  5. CYTOVENE [Concomitant]
     Indication: PRODUCT USED FOR UNKNOWN INDICATION
     Dosage: 5 MG/KG, Q12HR OVER 1 HOUR
     Route: 042
     Dates: start: 20110406, end: 20110411
  6. ZOFRAN [Concomitant]
     Indication: PRODUCT USED FOR UNKNOWN INDICATION
     Dosage: 16 MG, QD
     Route: 048
     Dates: start: 20110406, end: 20110413
  7. ACTIGALL [Concomitant]
     Indication: PRODUCT USED FOR UNKNOWN INDICATION
     Dosage: 300 MG, BID
     Route: 048
     Dates: start: 20110411, end: 20110415
  8. LOPRESSOR [Concomitant]
     Indication: PRODUCT USED FOR UNKNOWN INDICATION
     Dosage: 25 MG, BID
     Route: 048
     Dates: start: 20110405, end: 20110411
  9. PROGRAF [Concomitant]
     Indication: PRODUCT USED FOR UNKNOWN INDICATION
     Dosage: 1.9 MG, QD @ 10.4 ML/HR OVER 24 HRS
     Route: 042
     Dates: start: 20110411, end: 20110413
  10. CLOLAR [Suspect]
     Indication: ACUTE MYELOID LEUKAEMIA RECURRENT
     Dosage: 51 MG, QD OVER 3 HOURS
     Route: 042
     Dates: start: 20110406, end: 20110410
  11. MYCAMINE [Concomitant]
     Indication: PRODUCT USED FOR UNKNOWN INDICATION
     Dosage: 50 MG, QD @ 100 ML/HR OVER 60 MIN
     Route: 042
     Dates: start: 20110411, end: 20110411
  12. DIFLUCAN [Concomitant]
     Indication: PRODUCT USED FOR UNKNOWN INDICATION
     Dosage: 200 MG, QD
     Route: 048
     Dates: start: 20110406, end: 20110406
  13. MELPHALAN HYDROCHLORIDE [Suspect]
     Indication: ACUTE MYELOID LEUKAEMIA RECURRENT
     Dosage: 240 MG, ONCE
     Route: 065
     Dates: start: 20110411, end: 20110411
  14. AVELOX [Concomitant]
     Indication: PRODUCT USED FOR UNKNOWN INDICATION
     Dosage: 400 MG, QD
     Route: 048
     Dates: start: 20110406, end: 20110413
  15. PEPCID [Concomitant]
     Indication: PRODUCT USED FOR UNKNOWN INDICATION
     Dosage: UNK
     Route: 065
  16. CAMPATH [Suspect]
     Indication: ACUTE MYELOID LEUKAEMIA RECURRENT
     Dosage: 20 MG, QD OVER 4 HOURS
     Route: 042
     Dates: start: 20110406, end: 20110410

REACTIONS (15)
  - THROMBOCYTOPENIA [None]
  - BACTERAEMIA [None]
  - PALMAR-PLANTAR ERYTHRODYSAESTHESIA SYNDROME [None]
  - GINGIVAL BLEEDING [None]
  - FEBRILE NEUTROPENIA [None]
  - TACHYCARDIA [None]
  - HYPOTENSION [None]
  - TRANSAMINASES INCREASED [None]
  - PULSELESS ELECTRICAL ACTIVITY [None]
  - PRESYNCOPE [None]
  - FACE OEDEMA [None]
  - ANAEMIA [None]
  - BONE MARROW FAILURE [None]
  - HAEMODYNAMIC INSTABILITY [None]
  - HYPOXIA [None]
